FAERS Safety Report 6198069-X (Version None)
Quarter: 2009Q2

REPORT INFORMATION
  Report Type: 
  Country: None (occurrence: None)
  Receive Date: 20090521
  Receipt Date: 20090508
  Transmission Date: 20091009
  Serious: Yes (Hospitalization)
  Sender: FDA-Public Use
  Company Number: TR-ELI_LILLY_AND_COMPANY-TR200905004036

PATIENT
  Age: 41 Year

DRUGS (2)
  1. HUMALOG MIX 75/25 [Suspect]
     Indication: TYPE 2 DIABETES MELLITUS
     Dosage: 26 U, EACH MORNING
     Route: 058
     Dates: start: 20090301
  2. HUMALOG MIX 75/25 [Suspect]
     Dosage: 18 U, EACH EVENING
     Route: 058
     Dates: start: 20090301

REACTIONS (2)
  - BLOOD GLUCOSE INCREASED [None]
  - TOE AMPUTATION [None]
